FAERS Safety Report 7002068-5 (Version None)
Quarter: 2010Q3

REPORT INFORMATION
  Report Type: 
  Country: None (occurrence: None)
  Receive Date: 20100917
  Receipt Date: 20100917
  Transmission Date: 20110219
  Serious: Yes (Disabling)
  Sender: FDA-Public Use
  Company Number: None

PATIENT
  Sex: Male
  Weight: 81.1939 kg

DRUGS (2)
  1. ALIMTA [Suspect]
     Indication: LUNG NEOPLASM MALIGNANT
     Dosage: 1,000MG. EVERY 3 WKS. IV
     Route: 042
     Dates: start: 20100121, end: 20100526
  2. CAROPLATIN [Suspect]
     Dosage: 600 MG EVERY 3 WKS. IV
     Route: 042
     Dates: start: 20100121, end: 20100526

REACTIONS (4)
  - ABASIA [None]
  - NEUROPATHY PERIPHERAL [None]
  - WALKING AID USER [None]
  - WHEELCHAIR USER [None]
